FAERS Safety Report 7310173-9 (Version None)
Quarter: 2011Q1

REPORT INFORMATION
  Report Type: 
  Country: None (occurrence: None)
  Receive Date: 20110224
  Receipt Date: 20110217
  Transmission Date: 20110831
  Serious: No
  Sender: FDA-Public Use
  Company Number: US-PFIZER INC-2011036365

PATIENT
  Sex: Female
  Weight: 92.971 kg

DRUGS (4)
  1. VITAMIN B-12 [Suspect]
     Indication: FATIGUE
     Dosage: UNK
  2. PLAVIX [Concomitant]
     Indication: CARDIAC DISORDER
     Dosage: 75 MG, UNK
     Route: 048
  3. NEURONTIN [Suspect]
     Indication: HYPOAESTHESIA
     Dosage: 300 MG, 2X/DAY
     Route: 048
     Dates: start: 20050101
  4. INSULIN [Concomitant]
     Indication: DIABETES MELLITUS
     Dosage: UNK

REACTIONS (6)
  - SOMNOLENCE [None]
  - INSOMNIA [None]
  - NASAL DISCOMFORT [None]
  - DRUG HYPERSENSITIVITY [None]
  - FATIGUE [None]
  - MEMORY IMPAIRMENT [None]
